FAERS Safety Report 25329171 (Version 1)
Quarter: 2025Q2

REPORT INFORMATION
  Report Type: Report from Study
  Country: CA (occurrence: CA)
  Receive Date: 20250519
  Receipt Date: 20250519
  Transmission Date: 20250717
  Serious: Yes (Other)
  Sender: CELLTRION
  Company Number: CA-CELLTRION INC.-2025CA014581

PATIENT

DRUGS (21)
  1. RITUXIMAB [Suspect]
     Active Substance: RITUXIMAB
     Indication: Rheumatoid arthritis
     Route: 065
  2. ASPIRIN [Concomitant]
     Active Substance: ASPIRIN
  3. ATORVASTATIN [Concomitant]
     Active Substance: ATORVASTATIN
     Indication: Blood cholesterol
  4. DILTIAZEM [Concomitant]
     Active Substance: DILTIAZEM
     Indication: Hypertension
  5. ELAVIL [Concomitant]
     Active Substance: AMITRIPTYLINE HYDROCHLORIDE
     Indication: Insomnia
  6. ENBREL [Concomitant]
     Active Substance: ETANERCEPT
  7. FUROSEMIDE [Concomitant]
     Active Substance: FUROSEMIDE
     Indication: Hypertension
  8. HUMIRA [Concomitant]
     Active Substance: ADALIMUMAB
  9. HYDROXYCHLOROQUINE [Concomitant]
     Active Substance: HYDROXYCHLOROQUINE
  10. HYDROXYCHLOROQUINE SULFATE [Concomitant]
     Active Substance: HYDROXYCHLOROQUINE SULFATE
  11. KEVZARA [Concomitant]
     Active Substance: SARILUMAB
  12. LEFLUNOMIDE [Concomitant]
     Active Substance: LEFLUNOMIDE
  13. LISINOPRIL [Concomitant]
     Active Substance: LISINOPRIL
     Indication: Hypertension
  14. METHOTREXATE [Concomitant]
     Active Substance: METHOTREXATE
  15. ORENCIA [Concomitant]
     Active Substance: ABATACEPT
  16. PREDNISONE [Concomitant]
     Active Substance: PREDNISONE
  17. RINVOQ [Concomitant]
     Active Substance: UPADACITINIB
  18. SIMPONI [Concomitant]
     Active Substance: GOLIMUMAB
  19. SULFASALAZINE [Concomitant]
     Active Substance: SULFASALAZINE
  20. SYNTHROID [Concomitant]
     Active Substance: LEVOTHYROXINE SODIUM
     Indication: Hypothyroidism
  21. XELJANZ [Concomitant]
     Active Substance: TOFACITINIB CITRATE

REACTIONS (4)
  - Chest X-ray abnormal [Recovered/Resolved]
  - Exposure to communicable disease [Recovered/Resolved]
  - Pulmonary fibrosis [Recovered/Resolved]
  - Treatment failure [Recovered/Resolved]
